FAERS Safety Report 7724988-6 (Version None)
Quarter: 2011Q3

REPORT INFORMATION
  Report Type: 
  Country: None (occurrence: None)
  Receive Date: 20110901
  Receipt Date: 20110817
  Transmission Date: 20111222
  Serious: Yes (Disabling)
  Sender: FDA-Public Use
  Company Number: CA-ARROW GEN-2011-10119

PATIENT
  Sex: Female
  Weight: 74.83 kg

DRUGS (9)
  1. MEDROXIPROGESTERONE [Concomitant]
     Indication: MENOPAUSE
     Dosage: 2.5 UNK, DAILY
     Dates: start: 20100201
  2. TERBINAFINE HCL [Suspect]
     Indication: ONYCHOMYCOSIS
     Dosage: 250 MG, DAILY
     Route: 048
     Dates: start: 20110601
  3. TERBINAFINE HCL [Suspect]
     Indication: ONYCHOMYCOSIS
     Dosage: 250 MG, DAILY
     Route: 048
     Dates: start: 20110407, end: 20110531
  4. ELAVIL [Concomitant]
     Indication: PAIN
     Dosage: 10 MG, BID
     Route: 048
     Dates: start: 20030101
  5. LOSEC                              /00661201/ [Concomitant]
     Indication: DYSPEPSIA
     Dosage: 20 MG, DAILY
     Route: 048
     Dates: start: 20020101
  6. ESTRACE [Concomitant]
     Indication: MENOPAUSE
     Dosage: 1 MG, DAILY
     Dates: start: 20100201
  7. RAMIPRIL [Concomitant]
     Indication: PAIN
     Dosage: 30 MG, Q4H
     Route: 048
     Dates: start: 20010101
  8. ETODOLAC [Concomitant]
     Indication: PAIN
     Dosage: 300 MG, BID
     Dates: start: 20010101
  9. ALPRAZOLAM [Concomitant]
     Indication: INSOMNIA
     Dosage: 25 MG, BID
     Route: 048
     Dates: start: 20020101

REACTIONS (4)
  - DYSGEUSIA [None]
  - WEIGHT DECREASED [None]
  - AGEUSIA [None]
  - ASTHENIA [None]
